FAERS Safety Report 8174216-5 (Version None)
Quarter: 2012Q1

REPORT INFORMATION
  Report Type: 
  Country: None (occurrence: None)
  Receive Date: 20120224
  Receipt Date: 20120207
  Transmission Date: 20120608
  Serious: Yes (Other)
  Sender: FDA-Public Use
  Company Number: FK201200392

PATIENT
  Sex: Female

DRUGS (2)
  1. PREDNISOLONE [Suspect]
     Indication: NEUROMYELITIS OPTICA
     Dosage: 11 MG, 1 D
  2. MITOXANTRONE [Suspect]
     Indication: NEUROMYELITIS OPTICA
     Dosage: 7 MG/M2

REACTIONS (8)
  - PYREXIA [None]
  - RASH ERYTHEMATOUS [None]
  - HEADACHE [None]
  - TRIGEMINAL NEURALGIA [None]
  - MUSCULOSKELETAL STIFFNESS [None]
  - HERPES ZOSTER [None]
  - MENINGITIS HERPES [None]
  - NAUSEA [None]
